FAERS Safety Report 6916554-7 (Version None)
Quarter: 2010Q3

REPORT INFORMATION
  Report Type: 
  Country: None (occurrence: None)
  Receive Date: 20100809
  Receipt Date: 20100809
  Transmission Date: 20110219
  Serious: Yes (Hospitalization)
  Sender: FDA-Public Use
  Company Number: None

PATIENT
  Age: 46 Year
  Sex: Female
  Weight: 85.2762 kg

DRUGS (2)
  1. BENDAMUSTINE CEPHALON [Suspect]
     Indication: BREAST CANCER
     Dosage: 234 MG DAYS 1+2 Q28 DAYS IV
     Route: 042
     Dates: start: 20091228, end: 20100325
  2. ERLOTINIB 100 MG TABLETS GENENTECH [Suspect]
     Indication: BREAST CANCER
     Dosage: 150 MG 1 X DAY PO
     Route: 048
     Dates: start: 20100101, end: 20100413

REACTIONS (17)
  - ATRIAL SEPTAL DEFECT [None]
  - BLOOD POTASSIUM INCREASED [None]
  - CANDIDIASIS [None]
  - CONFUSIONAL STATE [None]
  - EJECTION FRACTION DECREASED [None]
  - HAEMOGLOBIN DECREASED [None]
  - HYPOPHAGIA [None]
  - INAPPROPRIATE ANTIDIURETIC HORMONE SECRETION [None]
  - KLEBSIELLA INFECTION [None]
  - LETHARGY [None]
  - LYMPHOPENIA [None]
  - MALAISE [None]
  - NAUSEA [None]
  - SPUTUM CULTURE POSITIVE [None]
  - STAPHYLOCOCCAL INFECTION [None]
  - TRANSAMINASES INCREASED [None]
  - TROPONIN INCREASED [None]
